FAERS Safety Report 4375222-9 (Version None)
Quarter: 2004Q2

REPORT INFORMATION
  Report Type: 
  Country: None (occurrence: None)
  Receive Date: 20040610
  Receipt Date: 20040510
  Transmission Date: 20050107
  Serious: Yes (Other)
  Sender: FDA-Public Use
  Company Number: PHEH2004US05248

PATIENT
  Age: 59 Year
  Sex: Female
  Weight: 83 kg

DRUGS (3)
  1. ZOMETA [Suspect]
     Indication: MULTIPLE MYELOMA
     Dosage: 4 MG, QMO
     Route: 042
     Dates: start: 20030905, end: 20040331
  2. THALIDOMIDE [Concomitant]
     Dosage: 400 MG, QD
     Route: 048
     Dates: start: 20030901
  3. DECADRON [Concomitant]
     Indication: MULTIPLE MYELOMA
     Dosage: 40 MG, 4 DAYS EVERY MONTH
     Dates: start: 20030901

REACTIONS (4)
  - ACTINOMYCOSIS [None]
  - BONE DEBRIDEMENT [None]
  - OSTEOMYELITIS [None]
  - TOOTH EXTRACTION [None]
